FAERS Safety Report 23990139 (Version 2)
Quarter: 2024Q3

REPORT INFORMATION
  Report Type: Spontaneous
  Country: FR (occurrence: FR)
  Receive Date: 20240619
  Receipt Date: 20240708
  Transmission Date: 20241017
  Serious: Yes (Other)
  Sender: AMERICAN REGENT
  Company Number: FR-AMERICAN REGENT INC-2024002333

PATIENT
  Age: 63 Year
  Sex: Female

DRUGS (5)
  1. FERINJECT [Suspect]
     Active Substance: FERRIC CARBOXYMALTOSE
     Indication: Cardiac failure
     Dosage: UNK
     Route: 042
     Dates: start: 20240424, end: 20240424
  2. GADOLINIUM [Suspect]
     Active Substance: GADOLINIUM
     Indication: Cardiac imaging procedure
     Dosage: UNK
     Route: 042
     Dates: start: 20240423, end: 20240423
  3. ENOXAPARIN SODIUM [Suspect]
     Active Substance: ENOXAPARIN SODIUM
     Indication: Cardiac failure
     Dosage: UNK
     Route: 058
     Dates: start: 20240424, end: 20240429
  4. ASPIRIN [Suspect]
     Active Substance: ASPIRIN
     Indication: Cardiac failure
     Dosage: UNK
     Route: 042
     Dates: start: 20240423, end: 20240423
  5. ASPIRIN [Suspect]
     Active Substance: ASPIRIN
     Dosage: UNK
     Route: 048
     Dates: start: 20240424, end: 20240424

REACTIONS (4)
  - Acute kidney injury [Not Recovered/Not Resolved]
  - Rash scarlatiniform [Not Recovered/Not Resolved]
  - Pruritus [Not Recovered/Not Resolved]
  - Off label use [Unknown]

NARRATIVE: CASE EVENT DATE: 20240424
